FAERS Safety Report 24239322 (Version 1)
Quarter: 2024Q3

REPORT INFORMATION
  Report Type: Spontaneous
  Country: CH (occurrence: CH)
  Receive Date: 20240822
  Receipt Date: 20240822
  Transmission Date: 20241017
  Serious: Yes (Other)
  Sender: BAYER
  Company Number: CH-BAYER-2024A119735

PATIENT
  Sex: Female

DRUGS (1)
  1. ULTRAVIST [Suspect]
     Active Substance: IOPROMIDE
     Dosage: UNK, ONCE

REACTIONS (4)
  - Poisoning [None]
  - Metabolic disorder [None]
  - Memory impairment [None]
  - Hypometabolism [None]
